FAERS Safety Report 5991140-4 (Version None)
Quarter: 2008Q4

REPORT INFORMATION
  Report Type: 
  Country: None (occurrence: None)
  Receive Date: 20081211
  Receipt Date: 20080424
  Transmission Date: 20090506
  Serious: No
  Sender: FDA-Public Use
  Company Number: US-AMGEN-KDL271160

PATIENT
  Sex: Female
  Weight: 49 kg

DRUGS (1)
  1. ENBREL [Suspect]
     Indication: RHEUMATOID ARTHRITIS
     Route: 058
     Dates: start: 20060413, end: 20080301

REACTIONS (4)
  - ESCHERICHIA URINARY TRACT INFECTION [None]
  - HERPES ZOSTER [None]
  - MOUTH ULCERATION [None]
  - POST HERPETIC NEURALGIA [None]
